FAERS Safety Report 5175976-8 (Version None)
Quarter: 2006Q4

REPORT INFORMATION
  Report Type: 
  Country: None (occurrence: None)
  Receive Date: 20061215
  Receipt Date: 20061204
  Transmission Date: 20070319
  Serious: Yes (Hospitalization)
  Sender: FDA-Public Use
  Company Number: NZ-ROCHE-473785

PATIENT
  Age: 71 Year
  Sex: Female

DRUGS (5)
  1. CAPECITABINE [Suspect]
     Indication: COLORECTAL CANCER
     Dosage: FROM DAYS ONE TO SEVEN OF A TWO WEEK CYCLE. (PER PROTOCOL)
     Route: 048
     Dates: start: 20060912, end: 20060930
  2. CAPECITABINE [Suspect]
     Dosage: ADMINISTERED ON DAYS 1-7 OF A 14 DAY CYCLE (PER PROTOCOL)  LAST DOSE PRIOR TO SAE: 29 NOV 2006
     Route: 048
     Dates: start: 20061024
  3. BEVACIZUMAB [Suspect]
     Indication: COLORECTAL CANCER
     Dosage: DATE OF LAST DOSE PRIOR TO SAE: 21 NOV 2006
     Route: 042
     Dates: start: 20060912
  4. OXALIPLATIN [Suspect]
     Indication: COLORECTAL CANCER
     Route: 042
     Dates: start: 20060912
  5. ONDANSETRON HCL [Concomitant]
     Route: 042
     Dates: start: 20061026

REACTIONS (2)
  - HERPES ZOSTER [None]
  - PAIN [None]
